FAERS Safety Report 5708947-0 (Version None)
Quarter: 2008Q2

REPORT INFORMATION
  Report Type: 
  Country: None (occurrence: None)
  Receive Date: 20080414
  Receipt Date: 20080414
  Transmission Date: 20081010
  Serious: Yes (Other)
  Sender: FDA-Public Use
  Company Number: None

PATIENT
  Sex: Female
  Weight: 76.81 kg

DRUGS (1)
  1. RISPERIDONE [Suspect]
     Dosage: 8MG/D
     Dates: start: 20080212, end: 20080219

REACTIONS (5)
  - ANXIETY [None]
  - COGWHEEL RIGIDITY [None]
  - EXTRAPYRAMIDAL DISORDER [None]
  - MUSCLE RIGIDITY [None]
  - NERVOUSNESS [None]
